FAERS Safety Report 8833612 (Version 1)
Quarter: 2012Q4

REPORT INFORMATION
  Report Type: 
  Country: US (occurrence: US)
  Receive Date: 20121010
  Receipt Date: 20121010
  Transmission Date: 20130627
  Serious: Yes (Other)
  Sender: FDA-Public Use
  Company Number: US-JNJFOC-20121003751

PATIENT
  Age: 11 Year
  Sex: Female
  Weight: 40.82 kg

DRUGS (4)
  1. BENADRYL ALLERGY ULTRATAB [Suspect]
     Indication: SLEEP DISORDER THERAPY
     Dosage: 3 nights per week, every other week from the past year
     Route: 048
  2. TYLENOL EXTRA STRENGTH RAPID RELEASE [Suspect]
     Indication: SLEEP DISORDER THERAPY
     Dosage: 3 nights per week, every other week from the past year
     Route: 048
  3. ANTIALLERGIC DRUGS [Concomitant]
     Indication: MULTIPLE ALLERGIES
     Route: 065
  4. ALLERTEC [Concomitant]
     Indication: PRODUCT USED FOR UNKNOWN INDICATION
     Route: 065

REACTIONS (2)
  - Drug dependence [Not Recovered/Not Resolved]
  - Off label use [Unknown]
